FAERS Safety Report 12322240 (Version 18)
Quarter: 2019Q3

REPORT INFORMATION
  Report Type: Spontaneous
  Country: DE (occurrence: DE)
  Receive Date: 20160502
  Receipt Date: 20190731
  Transmission Date: 20191004
  Serious: Yes (Death, Hospitalization, Other)
  Sender: FDA-Public Use
  Company Number: DE-SA-2016SA080913

PATIENT
  Age: 38 Year
  Sex: Female
  Weight: 91 kg

DRUGS (15)
  1. FAMPYRA [Concomitant]
     Active Substance: DALFAMPRIDINE
     Indication: RELAPSING-REMITTING MULTIPLE SCLEROSIS
     Dosage: 10 MG,BID
  2. MONO EMBOLEX [Concomitant]
     Active Substance: CERTOPARIN SODIUM
     Indication: THROMBOSIS PROPHYLAXIS
     Dosage: 300 IE
     Route: 058
  3. MONO EMBOLEX [Concomitant]
     Active Substance: CERTOPARIN SODIUM
     Dosage: UNK UNK, QD (3000IE/DAY)
  4. TAVANIC [Concomitant]
     Active Substance: LEVOFLOXACIN
     Indication: URINARY TRACT INFECTION
  5. SOLIFENACIN [Concomitant]
     Active Substance: SOLIFENACIN
     Indication: URGE INCONTINENCE
  6. ACICLOVIR [Concomitant]
     Active Substance: ACYCLOVIR
  7. RANITIDIN [Concomitant]
     Active Substance: RANITIDINE HYDROCHLORIDE
     Indication: SUPPLEMENTATION THERAPY
  8. PARACETAMOL [Concomitant]
     Active Substance: ACETAMINOPHEN
  9. METHYLPREDNISOLONE. [Concomitant]
     Active Substance: METHYLPREDNISOLONE
     Indication: PROPHYLAXIS
  10. CETIRIZINE [Concomitant]
     Active Substance: CETIRIZINE HYDROCHLORIDE
  11. MAYRA [Concomitant]
     Indication: ORAL CONTRACEPTION
     Route: 048
  12. REKAWAN [Concomitant]
     Active Substance: POTASSIUM CHLORIDE
  13. CORTISONE [Concomitant]
     Active Substance: CORTISONE
     Indication: RELAPSING-REMITTING MULTIPLE SCLEROSIS
     Dosage: UNK UNK,UNK
     Route: 065
  14. LEMTRADA [Suspect]
     Active Substance: ALEMTUZUMAB
     Indication: RELAPSING-REMITTING MULTIPLE SCLEROSIS
     Dosage: 12 MG,QD
     Route: 041
     Dates: start: 20160418, end: 20160420
  15. TAVEGIL [CLEMASTINE] [Concomitant]
     Active Substance: CLEMASTINE
     Indication: SUPPLEMENTATION THERAPY

REACTIONS (9)
  - Paraesthesia [Fatal]
  - Seizure [Fatal]
  - Cerebral haemorrhage [Fatal]
  - Vomiting [Fatal]
  - Loss of consciousness [Fatal]
  - Bradycardia [Fatal]
  - Headache [Fatal]
  - Tachycardia [Fatal]
  - Fatigue [Fatal]

NARRATIVE: CASE EVENT DATE: 20160418
